FAERS Safety Report 8293002-9 (Version None)
Quarter: 2012Q2

REPORT INFORMATION
  Report Type: 
  Country: None (occurrence: None)
  Receive Date: 20120417
  Receipt Date: 20120130
  Transmission Date: 20120825
  Serious: No
  Sender: FDA-Public Use
  Company Number: US-ASTRAZENECA-2012SE06355

PATIENT
  Age: 56 Year
  Sex: Female

DRUGS (5)
  1. NEXIUM [Suspect]
     Dosage: ONCE DAILY
     Route: 048
  2. NEXIUM [Suspect]
     Dosage: TWO TIMES DAILY
     Route: 048
  3. NEXIUM [Suspect]
     Dosage: TWO TIMES DAILY
     Route: 048
  4. NEXIUM [Suspect]
     Dosage: ONCE DAILY
     Route: 048
  5. OMEPRAZOLE [Suspect]
     Dosage: FOUR TIMES DAILY
     Route: 048

REACTIONS (3)
  - OFF LABEL USE [None]
  - MALAISE [None]
  - DRUG INEFFECTIVE [None]
